FAERS Safety Report 12589475 (Version 2)
Quarter: 2016Q3

REPORT INFORMATION
  Report Type: Spontaneous
  Country: JP (occurrence: JP)
  Receive Date: 20160725
  Receipt Date: 20160816
  Transmission Date: 20161109
  Serious: Yes (Hospitalization, Other)
  Sender: FDA-Public Use
  Company Number: JP-GILEAD-2016-0222693

PATIENT
  Age: 53 Year
  Sex: Female

DRUGS (14)
  1. SOLANAX [Concomitant]
     Active Substance: ALPRAZOLAM
  2. SENNOSIDE                          /00571901/ [Concomitant]
     Active Substance: SENNOSIDES A AND B
  3. AKINETON [Concomitant]
     Active Substance: BIPERIDEN HYDROCHLORIDE
  4. HARVONI [Suspect]
     Active Substance: LEDIPASVIR\SOFOSBUVIR
     Indication: CHRONIC HEPATITIS C
     Dosage: UNK
     Route: 065
     Dates: start: 20160512, end: 20160707
  5. LORAZEPAM. [Concomitant]
     Active Substance: LORAZEPAM
  6. SERENACE [Concomitant]
     Active Substance: HALOPERIDOL
  7. LEXOTAN [Concomitant]
     Active Substance: BROMAZEPAM
  8. AZILVA [Concomitant]
     Active Substance: AZILSARTAN KAMEDOXOMIL
  9. INDERAL [Concomitant]
     Active Substance: PROPRANOLOL HYDROCHLORIDE
  10. ROHYPNOL [Concomitant]
     Active Substance: FLUNITRAZEPAM
  11. EQUA [Concomitant]
     Active Substance: VILDAGLIPTIN
  12. METFORMIN [Concomitant]
     Active Substance: METFORMIN HYDROCHLORIDE
  13. RISPERDAL [Concomitant]
     Active Substance: RISPERIDONE
  14. RABEPRAZOLE [Concomitant]
     Active Substance: RABEPRAZOLE

REACTIONS (1)
  - Oesophageal varices haemorrhage [Recovering/Resolving]

NARRATIVE: CASE EVENT DATE: 20160707
